FAERS Safety Report 9849478 (Version 1)
Quarter: 2014Q1

REPORT INFORMATION
  Report Type: Spontaneous
  Country: US (occurrence: None)
  Receive Date: 20140127
  Receipt Date: 20140127
  Transmission Date: 20141002
  Serious: Yes (Disabling)
  Sender: FDA-Public Use
  Company Number: None

PATIENT
  Age: 28 Year
  Sex: Male
  Weight: 106.6 kg

DRUGS (1)
  1. VANCOMYCIN [Suspect]
     Dosage: 147/ML/8 HOURS ?THREE TIMES DAILY?INTO A VEIN
     Dates: start: 20131210, end: 20140125

REACTIONS (6)
  - Drug level increased [None]
  - Vomiting [None]
  - Feeling abnormal [None]
  - Vomiting [None]
  - Red man syndrome [None]
  - Infusion related reaction [None]
